FAERS Safety Report 7968108-1 (Version None)
Quarter: 2011Q4

REPORT INFORMATION
  Report Type: 
  Country: None (occurrence: None)
  Receive Date: 20111209
  Receipt Date: 20111206
  Transmission Date: 20120403
  Serious: Yes (Other)
  Sender: FDA-Public Use
  Company Number: BR-PFIZER INC-2011291716

PATIENT
  Age: 54 Year
  Sex: Male
  Weight: 67 kg

DRUGS (2)
  1. VIAGRA [Suspect]
     Indication: SEXUAL DYSFUNCTION
     Dosage: 50 MG, 1X/DAY (1 TABLET DAILY)
     Route: 048
     Dates: start: 20111124
  2. VIAGRA [Suspect]

REACTIONS (14)
  - LUNG DISORDER [None]
  - CHEST PAIN [None]
  - VOMITING [None]
  - STRESS [None]
  - NERVOUSNESS [None]
  - DEPRESSION [None]
  - HEADACHE [None]
  - INSOMNIA [None]
  - ANXIETY [None]
  - RETCHING [None]
  - DECREASED APPETITE [None]
  - CHEST DISCOMFORT [None]
  - LIVER DISORDER [None]
  - IMPULSIVE BEHAVIOUR [None]
